FAERS Safety Report 8093630-X (Version None)
Quarter: 2011Q4

REPORT INFORMATION
  Report Type: 
  Country: None (occurrence: None)
  Receive Date: 20111222
  Receipt Date: 20110908
  Transmission Date: 20120403
  Serious: Yes (Death)
  Sender: FDA-Public Use
  Company Number: UTC-009227

PATIENT
  Age: 36 Year
  Sex: Female
  Weight: 72.73 kg

DRUGS (3)
  1. TYVASO [Suspect]
     Indication: PULMONARY ARTERIAL HYPERTENSION
     Dosage: 18 - 54 MICROGRAMS (54 MCG, 4 IN 1 D), INHALATION
     Route: 055
     Dates: start: 20100817
  2. TYVASO [Suspect]
     Indication: SYSTEMIC SCLEROSIS
     Dosage: 18 - 54 MICROGRAMS (54 MCG, 4 IN 1 D), INHALATION
     Route: 055
     Dates: start: 20100817
  3. REVATIO [Concomitant]

REACTIONS (1)
  - DEATH [None]
